FAERS Safety Report 9497268 (Version 2)
Quarter: 2013Q4

REPORT INFORMATION
  Report Type: Report from Study
  Country: US (occurrence: US)
  Receive Date: 20130904
  Receipt Date: 20131211
  Transmission Date: 20140711
  Serious: Yes (Disabling)
  Sender: FDA-Public Use
  Company Number: PHEH2013US018528

PATIENT
  Age: 47 Year
  Sex: Male

DRUGS (5)
  1. TASIGNA [Suspect]
     Indication: CHRONIC LYMPHOCYTIC LEUKAEMIA
     Dosage: 200 MG, Q12H
     Route: 048
     Dates: start: 20100903
  2. JANUMET [Concomitant]
     Indication: DIABETES MELLITUS
     Dosage: 0.5 DF, BID
     Route: 048
     Dates: start: 2006
  3. CRESTOR [Concomitant]
     Indication: HYPERLIPIDAEMIA
     Dosage: 0.5 DF, QHS
     Dates: start: 2006
  4. GLIPIZIDE [Concomitant]
     Indication: DIABETES MELLITUS
     Dosage: 0.5 DF, BID
     Route: 048
     Dates: start: 2001
  5. LISINOPRIL [Concomitant]
     Indication: HYPERTENSION
     Dosage: 0.5 DF, DAILY
     Route: 048
     Dates: start: 2001

REACTIONS (1)
  - Blindness [Not Recovered/Not Resolved]
